FAERS Safety Report 26134823 (Version 1)
Quarter: 2025Q4

REPORT INFORMATION
  Report Type: Spontaneous
  Country: US (occurrence: None)
  Receive Date: 20251208
  Receipt Date: 20251208
  Transmission Date: 20260117
  Serious: No
  Sender: FDA-CTU
  Company Number: None

PATIENT

DRUGS (1)
  1. HUMULIN R [Suspect]
     Active Substance: INSULIN HUMAN

REACTIONS (4)
  - Overdose [None]
  - Incorrect dose administered [None]
  - Wrong technique in product usage process [None]
  - Hypoglycaemic coma [None]
